FAERS Safety Report 17039571 (Version 3)
Quarter: 2019Q4

REPORT INFORMATION
  Report Type: Report from Study
  Country: None (occurrence: BE)
  Receive Date: 20191115
  Receipt Date: 20191202
  Transmission Date: 20200122
  Serious: Yes (Death, Other)
  Sender: FDA-Public Use
  Company Number: BE-ABBVIE-19K-013-3002104-00

PATIENT
  Sex: Male

DRUGS (3)
  1. DUODOPA [Suspect]
     Active Substance: CARBIDOPA\LEVODOPA
     Dosage: DOSES CONTINUOUSLY MONITORED AND ADAPTED
     Route: 050
     Dates: start: 20141009, end: 20170710
  2. DUODOPA [Suspect]
     Active Substance: CARBIDOPA\LEVODOPA
     Indication: PARKINSON^S DISEASE
     Dosage: MD=3ML, CD=1.3ML/HR DURING 16HRS, ED=1ML
     Route: 050
     Dates: start: 20141006, end: 20141009
  3. DUODOPA [Suspect]
     Active Substance: CARBIDOPA\LEVODOPA
     Dosage: MD=6ML, CD=1.8ML/HR DURING 16HRS, ED=2.2ML?20 MG/ML 5 MG/ML
     Route: 050
     Dates: start: 20170710

REACTIONS (2)
  - General physical health deterioration [Fatal]
  - Palliative care [Fatal]

NARRATIVE: CASE EVENT DATE: 201911
